FAERS Safety Report 12312973 (Version 1)
Quarter: 2016Q2

REPORT INFORMATION
  Report Type: Spontaneous
  Country: US (occurrence: None)
  Receive Date: 20160427
  Receipt Date: 20160427
  Transmission Date: 20160815
  Serious: No
  Sender: FDA-Public Use
  Company Number: None

PATIENT
  Age: 80 Year
  Sex: Female

DRUGS (1)
  1. CEFTAZIDIME 6GM SAGENT [Suspect]
     Active Substance: CEFTAZIDIME
     Indication: ULCER
     Dosage: 1GM Q 12 HOURS IVP
     Dates: start: 20160421, end: 20160423

REACTIONS (1)
  - Rash [None]

NARRATIVE: CASE EVENT DATE: 20160423
